FAERS Safety Report 15131718 (Version 1)
Quarter: 2018Q4

REPORT INFORMATION
  Report Type: Spontaneous
  Country: US (occurrence: US)
  Receive Date: 20180711
  Receipt Date: 20180711
  Transmission Date: 20190204
  Serious: No
  Sender: FDA-Public Use
  Company Number: US-OPTINOSE US, INC.-US-2018OPT000077

PATIENT
  Age: 55 Year
  Sex: Male

DRUGS (1)
  1. XHANCE [Suspect]
     Active Substance: FLUTICASONE PROPIONATE
     Indication: PRODUCT USED FOR UNKNOWN INDICATION
     Dosage: 372 ?G, BID (2 PUFFS IN EACH NOSTRIL TWICE DAILY)
     Route: 045
     Dates: start: 20180505, end: 20180512

REACTIONS (7)
  - Pyrexia [Unknown]
  - Ear congestion [Unknown]
  - Dizziness [Unknown]
  - Sinusitis [Unknown]
  - Eye inflammation [Unknown]
  - Secretion discharge [Unknown]
  - Nasal inflammation [Unknown]

NARRATIVE: CASE EVENT DATE: 2018
